FAERS Safety Report 8595231-3 (Version None)
Quarter: 2012Q3

REPORT INFORMATION
  Report Type: 
  Country: None (occurrence: None)
  Receive Date: 20120815
  Receipt Date: 20120810
  Transmission Date: 20120928
  Serious: Yes (Hospitalization)
  Sender: FDA-Public Use
  Company Number: JP-GENZYME-THYM-1002197

PATIENT
  Sex: Female
  Weight: 85 kg

DRUGS (22)
  1. ACYCLOVIR [Concomitant]
     Indication: INFECTION PROPHYLAXIS
     Dosage: 200 MG, QD
     Route: 048
     Dates: start: 20101214, end: 20110103
  2. LANSOPRAZOLE [Concomitant]
     Indication: GASTRITIS
     Dosage: UNK
     Route: 065
  3. LOXOPROFEN SODIUM SUCCINATE [Concomitant]
     Indication: HEADACHE
     Dosage: UNK
     Route: 065
     Dates: start: 20110118, end: 20110118
  4. FLUCONAZOLE [Concomitant]
     Indication: INFECTION PROPHYLAXIS
     Dosage: 200 MG, QD
     Route: 048
     Dates: start: 20101211, end: 20101212
  5. DIMEMORFAN PHOSPHATE [Concomitant]
     Indication: UPPER RESPIRATORY TRACT INFLAMMATION
     Dosage: UNK
     Route: 065
     Dates: start: 20110323, end: 20110327
  6. PREDNISOLONE [Concomitant]
     Indication: PREMEDICATION
     Dosage: UNK
     Route: 065
     Dates: start: 20101222, end: 20110111
  7. MAGNESIUM OXIDE [Concomitant]
     Indication: CONSTIPATION
     Dosage: UNK
     Route: 065
  8. NIFEDIPINE [Concomitant]
     Indication: HYPERTENSION
     Dosage: UNK
     Route: 065
  9. CYCLOSPORINE [Concomitant]
     Indication: APLASTIC ANAEMIA
     Dosage: 4 MG/KG, QD
     Route: 048
     Dates: start: 20101211
  10. LEVOFLOXACIN [Concomitant]
     Indication: INFECTION PROPHYLAXIS
     Dosage: 500 MG, QD
     Route: 048
     Dates: start: 20101214, end: 20110119
  11. VIDARABINE [Concomitant]
     Indication: ORAL HERPES
     Dosage: UNK
     Route: 065
     Dates: start: 20110330, end: 20110406
  12. THYMOGLOBULIN [Suspect]
     Indication: APLASTIC ANAEMIA
     Dosage: 225 MG, QD
     Route: 042
     Dates: start: 20101211, end: 20101215
  13. SULFAMETHOPRIM [Concomitant]
     Indication: INFECTION PROPHYLAXIS
     Dosage: 1 G, QD
     Route: 048
     Dates: start: 20101211, end: 20101213
  14. ITRACONAZOLE [Concomitant]
     Indication: INFECTION PROPHYLAXIS
     Dosage: 200 MG, QD
     Route: 048
     Dates: start: 20101213, end: 20101216
  15. METHYLPREDNISOLONE SODIUM SUCCINATE [Concomitant]
     Indication: PREMEDICATION
     Dosage: UNK
     Route: 065
     Dates: start: 20101211, end: 20101221
  16. METHYLPREDNISOLONE [Concomitant]
     Indication: PRODUCT USED FOR UNKNOWN INDICATION
     Dosage: 120 MG, QD
     Route: 042
     Dates: start: 20101211
  17. FILGRASTIM [Concomitant]
     Indication: PRODUCT USED FOR UNKNOWN INDICATION
     Dosage: 400 MCG/M2, QD
     Route: 042
     Dates: start: 20101211, end: 20110403
  18. FLUCONAZOLE [Concomitant]
     Dosage: UNK
     Route: 065
     Dates: start: 20101217, end: 20110119
  19. METOCLOPRAMIDE [Concomitant]
     Indication: VOMITING
     Dosage: UNK
     Route: 065
     Dates: start: 20110116, end: 20110215
  20. CARBAZOCHROME SODIUM SULFONATE HYDRATE [Concomitant]
     Indication: PRODUCT USED FOR UNKNOWN INDICATION
     Dosage: UNK
     Route: 065
     Dates: start: 20101126, end: 20101224
  21. BIFIDOBACTERIUM [Concomitant]
     Indication: CONSTIPATION
     Dosage: UNK
     Route: 065
  22. NON-PYRINE COLD PREPARATION [Concomitant]
     Indication: UPPER RESPIRATORY TRACT INFLAMMATION
     Dosage: UNK
     Route: 065
     Dates: start: 20110323, end: 20110327

REACTIONS (2)
  - FEBRILE NEUTROPENIA [None]
  - DRUG-INDUCED LIVER INJURY [None]
